FAERS Safety Report 5782599-6 (Version None)
Quarter: 2008Q2

REPORT INFORMATION
  Report Type: 
  Country: None (occurrence: None)
  Receive Date: 20080624
  Receipt Date: 20080611
  Transmission Date: 20081010
  Serious: Yes (Other)
  Sender: FDA-Public Use
  Company Number: US-PFIZER INC-2008050738

PATIENT
  Sex: Female
  Weight: 68.181 kg

DRUGS (6)
  1. CHANTIX [Suspect]
     Indication: SMOKING CESSATION THERAPY
     Route: 048
     Dates: start: 20070101, end: 20080501
  2. XANAX [Concomitant]
  3. CLONAZEPAM [Concomitant]
  4. ATENOLOL [Concomitant]
  5. TRIAMTERENE [Concomitant]
  6. FLUOXETINE [Concomitant]

REACTIONS (9)
  - ACTIVITIES OF DAILY LIVING IMPAIRED [None]
  - AMNESIA [None]
  - APHASIA [None]
  - COGNITIVE DISORDER [None]
  - DROOLING [None]
  - FEELING ABNORMAL [None]
  - HEAD DISCOMFORT [None]
  - HYPOAESTHESIA [None]
  - MALAISE [None]
